FAERS Safety Report 12560601 (Version 1)
Quarter: 2016Q3

REPORT INFORMATION
  Report Type: Spontaneous
  Country: US (occurrence: None)
  Receive Date: 20160714
  Receipt Date: 20160714
  Transmission Date: 20161109
  Serious: Yes (Death, Life-Threatening, Hospitalization, Other)
  Sender: FDA-Public Use
  Company Number: None

PATIENT
  Age: 84 Year
  Sex: Male
  Weight: 63.5 kg

DRUGS (4)
  1. LORAZEPAM. [Concomitant]
     Active Substance: LORAZEPAM
  2. REVLIMID [Suspect]
     Active Substance: LENALIDOMIDE
     Indication: MYELODYSPLASTIC SYNDROME
     Dosage: 15 MG 1 TABLET/DAY ONCE BY MOUTH
     Route: 048
     Dates: start: 20160113, end: 20160222
  3. ESCITALORPAM [Concomitant]
  4. LIPITOR [Concomitant]
     Active Substance: ATORVASTATIN CALCIUM

REACTIONS (10)
  - Fatigue [None]
  - Asthenia [None]
  - Depressed mood [None]
  - Night sweats [None]
  - Infection [None]
  - Splenic infarction [None]
  - Decreased appetite [None]
  - Nausea [None]
  - Abasia [None]
  - Depression [None]
